FAERS Safety Report 19503315 (Version 1)
Quarter: 2021Q3

REPORT INFORMATION
  Report Type: Spontaneous
  Country: NO (occurrence: NO)
  Receive Date: 20210707
  Receipt Date: 20210707
  Transmission Date: 20211014
  Serious: Yes (Hospitalization)
  Sender: FDA-Public Use
  Company Number: NO-AMNEAL PHARMACEUTICALS-2021-AMRX-02654

PATIENT
  Age: 39 Year
  Sex: Male

DRUGS (4)
  1. ADUVANZ [Suspect]
     Active Substance: LISDEXAMFETAMINE DIMESYLATE
     Indication: ATTENTION DEFICIT HYPERACTIVITY DISORDER
     Dosage: 70 MILLIGRAM, UNK
     Route: 065
  2. AMPHETAMINE SULFATE. [Suspect]
     Active Substance: AMPHETAMINE SULFATE
     Dosage: UNK
  3. AMPHETAMINE SULFATE. [Suspect]
     Active Substance: AMPHETAMINE SULFATE
     Indication: DRUG ABUSE
     Dosage: UNK
     Route: 065
  4. CANNABIS [Suspect]
     Active Substance: CANNABIS SATIVA SUBSP. INDICA TOP
     Indication: DRUG ABUSE
     Dosage: UNK
     Route: 065

REACTIONS (4)
  - Drug abuse [Unknown]
  - Arteriospasm coronary [Recovering/Resolving]
  - Stress cardiomyopathy [Recovering/Resolving]
  - Electrocardiogram ST segment elevation [Recovered/Resolved]
